FAERS Safety Report 7909303 (Version 2)
Quarter: 2013Q2

REPORT INFORMATION
  Report Type: Spontaneous
  Country: US (occurrence: US)
  Receive Date: 20110421
  Receipt Date: 20130415
  Transmission Date: 20140414
  Serious: Yes (Hospitalization, Other)
  Sender: FDA-Public Use
  Company Number: US-ASTRAZENECA-2011SE06567

PATIENT
  Age: 69 Year
  Sex: Female
  Weight: 89.8 kg

DRUGS (3)
  1. NEXIUM [Suspect]
     Indication: GASTRIC DISORDER
     Dosage: DAILY
     Route: 048
  2. TOPROL XL [Suspect]
     Route: 048
  3. 3 BLOOD PRESSURE MEDICATION [Concomitant]
     Indication: HYPERTENSION

REACTIONS (6)
  - Fall [Unknown]
  - Rotator cuff syndrome [Unknown]
  - Malaise [Unknown]
  - Tooth disorder [Unknown]
  - Hearing impaired [Unknown]
  - Intentional drug misuse [Unknown]
